FAERS Safety Report 16765358 (Version 1)
Quarter: 2019Q3

REPORT INFORMATION
  Report Type: Report from Study
  Country: CA (occurrence: CA)
  Receive Date: 20190903
  Receipt Date: 20190903
  Transmission Date: 20191005
  Serious: Yes (Life-Threatening, Hospitalization, Disabling, Other)
  Sender: FDA-Public Use
  Company Number: CA-ORION CORPORATION ORION PHARMA-TREX2019-3158

PATIENT
  Age: 63 Year
  Sex: Female
  Weight: 28 kg

DRUGS (15)
  1. ETIDRONATE DISODIUM. [Concomitant]
     Active Substance: ETIDRONATE DISODIUM
     Route: 065
  2. CALCIUM CARBONATE. [Concomitant]
     Active Substance: CALCIUM CARBONATE
     Route: 065
  3. CALCIUM CARBONATE. [Concomitant]
     Active Substance: CALCIUM CARBONATE
     Route: 048
  4. PREDNISONE. [Concomitant]
     Active Substance: PREDNISONE
     Route: 065
  5. PROLIA [Concomitant]
     Active Substance: DENOSUMAB
     Route: 058
  6. METHOTREXATE (TRADE NAME UNKNOWN) [Suspect]
     Active Substance: METHOTREXATE
     Indication: RHEUMATOID ARTHRITIS
     Route: 048
  7. HUMIRA [Suspect]
     Active Substance: ADALIMUMAB
     Indication: RHEUMATOID ARTHRITIS
     Route: 058
  8. PREDNISONE. [Concomitant]
     Active Substance: PREDNISONE
     Route: 065
  9. CALCIUM GLUCONATE. [Concomitant]
     Active Substance: CALCIUM GLUCONATE
     Indication: OSTEOPOROSIS
     Route: 065
  10. VITAMIN D [Concomitant]
     Active Substance: VITAMIN D NOS
     Indication: OSTEOPOROSIS
     Route: 065
  11. ALENDRONATE SODIUM/VITAMIN D3 [Concomitant]
     Route: 065
  12. PREDNISONE. [Concomitant]
     Active Substance: PREDNISONE
     Route: 065
  13. ETIDRONATE DISODIUM. [Concomitant]
     Active Substance: ETIDRONATE DISODIUM
     Route: 048
  14. PREDNISONE. [Concomitant]
     Active Substance: PREDNISONE
     Route: 065
  15. ANAKINRA [Concomitant]
     Active Substance: ANAKINRA
     Route: 058

REACTIONS (8)
  - Cough [Not Recovered/Not Resolved]
  - Dysphagia [Not Recovered/Not Resolved]
  - Interstitial lung disease [Not Recovered/Not Resolved]
  - Lung disorder [Not Recovered/Not Resolved]
  - Product use issue [Unknown]
  - Nerve compression [Not Recovered/Not Resolved]
  - Drug ineffective [Not Recovered/Not Resolved]
  - Pneumothorax [Not Recovered/Not Resolved]
